FAERS Safety Report 13652143 (Version 1)
Quarter: 2017Q2

REPORT INFORMATION
  Report Type: Report from Study
  Country: BE (occurrence: BE)
  Receive Date: 20170614
  Receipt Date: 20170614
  Transmission Date: 20170830
  Serious: Yes (Hospitalization)
  Sender: FDA-Public Use
  Company Number: BE-AMGEN-BELCT2014042140

PATIENT
  Age: 70 Year
  Sex: Female
  Weight: 108.4 kg

DRUGS (9)
  1. LASIX [Concomitant]
     Active Substance: FUROSEMIDE
     Dosage: 40 MG, UNK
     Route: 048
     Dates: start: 20131206
  2. VITAMIN B [Concomitant]
     Active Substance: VITAMIN B
     Dosage: 1 UNK, UNK
     Route: 048
     Dates: start: 2012
  3. LITICAN                            /00690801/ [Concomitant]
     Active Substance: ALIZAPRIDE
     Dosage: 50 MG, UNK
     Route: 042
     Dates: start: 20131009
  4. CONTRAMAL [Concomitant]
     Active Substance: TRAMADOL HYDROCHLORIDE
     Dosage: 20 GTT, UNK
     Route: 048
     Dates: start: 2012
  5. D-CURE [Concomitant]
     Dosage: 1 UNK, UNK
     Route: 048
     Dates: start: 2012
  6. LYRICA [Concomitant]
     Active Substance: PREGABALIN
     Dosage: 300 MG, UNK
     Route: 048
     Dates: start: 2012
  7. PEGYLATED LIPOSOMAL DOXORUBICIN HYDROCHLORIDE [Concomitant]
     Active Substance: DOXORUBICIN HYDROCHLORIDE
     Dosage: 60 MG, UNK
     Route: 042
     Dates: start: 20140130, end: 20140326
  8. BEPANTHOL                          /00178901/ [Concomitant]
     Dosage: 1 UNK, UNK
     Route: 061
     Dates: start: 20131009
  9. AMG 386 [Suspect]
     Active Substance: TREBANANIB
     Indication: OVARIAN CANCER
     Dosage: UNK
     Route: 042
     Dates: start: 20131009

REACTIONS (1)
  - Ascites [Recovered/Resolved]

NARRATIVE: CASE EVENT DATE: 20140603
